FAERS Safety Report 21339184 (Version 2)
Quarter: 2022Q4

REPORT INFORMATION
  Report Type: Spontaneous
  Country: AF (occurrence: AF)
  Receive Date: 20220915
  Receipt Date: 20221006
  Transmission Date: 20230112
  Serious: Yes (Other)
  Sender: FDA-Public Use
  Company Number: AF-BAYER-2022A124805

PATIENT
  Age: 32 Year
  Sex: Female
  Weight: 66 kg

DRUGS (1)
  1. LEVONORGESTREL [Suspect]
     Active Substance: LEVONORGESTREL
     Indication: Contraception
     Dosage: UNK
     Route: 059
     Dates: start: 20200208, end: 20220103

REACTIONS (3)
  - Device breakage [Unknown]
  - Polymenorrhoea [Unknown]
  - Menstruation delayed [Unknown]
